FAERS Safety Report 21639748 (Version 1)
Quarter: 2022Q4

REPORT INFORMATION
  Report Type: Report from Study
  Country: US (occurrence: US)
  Receive Date: 20221124
  Receipt Date: 20221124
  Transmission Date: 20230112
  Serious: No
  Sender: FDA-Public Use
  Company Number: US-ABBVIE-4163353

PATIENT
  Sex: Female

DRUGS (4)
  1. HUMIRA [Suspect]
     Active Substance: ADALIMUMAB
     Indication: Rheumatoid arthritis
     Route: 058
  2. Moderna [Concomitant]
     Indication: COVID-19 immunisation
     Dosage: FIRST DOSE?FREQUENCY 1-1-ONCE
     Route: 030
     Dates: start: 20210311, end: 20210311
  3. Moderna [Concomitant]
     Indication: COVID-19 immunisation
     Dosage: SECOND DOSE?FREQUENCY 1-1-ONCE
     Route: 030
     Dates: start: 20210408, end: 20210408
  4. Moderna [Concomitant]
     Indication: COVID-19 immunisation
     Dosage: THIRD/BOOSTER DOSE?FREQUENCY 1-1-ONCE
     Route: 030
     Dates: start: 20211109, end: 20211109

REACTIONS (8)
  - Joint swelling [Unknown]
  - Back pain [Not Recovered/Not Resolved]
  - Wound [Unknown]
  - Peripheral swelling [Unknown]
  - Pain in extremity [Unknown]
  - Arthralgia [Unknown]
  - Psoriasis [Unknown]
  - Rash vesicular [Unknown]
